FAERS Safety Report 6324919-X (Version None)
Quarter: 2009Q3

REPORT INFORMATION
  Report Type: 
  Country: None (occurrence: None)
  Receive Date: 20090824
  Receipt Date: 20090618
  Transmission Date: 20100115
  Serious: No
  Sender: FDA-Public Use
  Company Number: US-ABBOTT-09P-163-0580859-00

PATIENT
  Sex: Male
  Weight: 72.64 kg

DRUGS (14)
  1. NIASPAN [Suspect]
     Indication: LOW DENSITY LIPOPROTEIN INCREASED
     Route: 048
     Dates: start: 20090617
  2. ASPIRIN [Concomitant]
     Indication: CORONARY ARTERY BYPASS
     Route: 048
  3. INDAPAMIDE [Concomitant]
     Indication: HYPERTENSION
     Route: 048
  4. POTASSIUM CHLORIDE XR [Concomitant]
     Indication: ELECTROLYTE SUBSTITUTION THERAPY
     Route: 050
  5. FOLIC ACID [Concomitant]
     Indication: MEDICAL DIET
     Route: 048
  6. ALLOPURINOL [Concomitant]
     Indication: GOUT
     Route: 048
  7. STRESS TAB/ZINC [Concomitant]
     Indication: MEDICAL DIET
     Dosage: UNKNOWN
     Route: 048
  8. VITAMIN D [Concomitant]
     Indication: MEDICAL DIET
     Route: 048
  9. TOPROL-XL [Concomitant]
     Indication: CARDIAC DISORDER
     Route: 048
  10. CRESTOR [Concomitant]
     Indication: BLOOD CHOLESTEROL INCREASED
     Route: 048
  11. AVODART [Concomitant]
     Indication: PROSTATOMEGALY
     Route: 048
  12. HYTRIN [Concomitant]
     Indication: HYPERTENSION
     Route: 048
  13. VESICARE [Concomitant]
     Indication: HYPERTONIC BLADDER
     Route: 048
  14. CYSTINE [Concomitant]
     Indication: DRUG USE FOR UNKNOWN INDICATION
     Dosage: 1 DROPS IN EACH EYE FOUR TIME DAILY
     Route: 047

REACTIONS (2)
  - DIZZINESS [None]
  - HEADACHE [None]
